FAERS Safety Report 6669091-1 (Version None)
Quarter: 2010Q2

REPORT INFORMATION
  Report Type: 
  Country: None (occurrence: None)
  Receive Date: 20100406
  Receipt Date: 20100401
  Transmission Date: 20101027
  Serious: Yes (Death, Hospitalization)
  Sender: FDA-Public Use
  Company Number: FR-SANOFI-AVENTIS-2010SA018867

PATIENT
  Age: 62 Year
  Sex: Female

DRUGS (2)
  1. TAXOTERE [Suspect]
     Route: 042
     Dates: end: 20091125
  2. TRASTUZUMAB [Suspect]
     Route: 042
     Dates: end: 20091125

REACTIONS (2)
  - AGRANULOCYTOSIS [None]
  - PANCYTOPENIA [None]
